FAERS Safety Report 20770098 (Version 1)
Quarter: 2022Q2

REPORT INFORMATION
  Report Type: Spontaneous
  Country: US (occurrence: None)
  Receive Date: 20220429
  Receipt Date: 20220429
  Transmission Date: 20220720
  Serious: Yes (Hospitalization)
  Sender: FDA-Public Use
  Company Number: None

PATIENT
  Age: 39 Year
  Sex: Female

DRUGS (1)
  1. IBRANCE [Suspect]
     Active Substance: PALBOCICLIB
     Indication: Neoplasm malignant
     Dosage: FREQUENCY : DAILY;?
     Route: 048
     Dates: start: 20220424, end: 20220427

REACTIONS (5)
  - Abdominal distension [None]
  - Abdominal pain upper [None]
  - Infection [None]
  - Hepatic enzyme increased [None]
  - Discomfort [None]

NARRATIVE: CASE EVENT DATE: 20220424
